FAERS Safety Report 8596996 (Version 3)
Quarter: 2013Q4

REPORT INFORMATION
  Report Type: Spontaneous
  Country: US (occurrence: US)
  Receive Date: 20120605
  Receipt Date: 20131129
  Transmission Date: 20140711
  Serious: Yes (Disabling, Other)
  Sender: FDA-Public Use
  Company Number: US-ASTRAZENECA-2012SE34733

PATIENT
  Sex: Female
  Weight: 86.2 kg

DRUGS (24)
  1. NEXIUM [Suspect]
     Indication: GASTROOESOPHAGEAL REFLUX DISEASE
     Route: 048
     Dates: start: 20040415
  2. NEXIUM [Suspect]
     Indication: GASTROOESOPHAGEAL REFLUX DISEASE
     Dosage: ONCE DAILY
     Route: 048
     Dates: end: 2009
  3. PREVACID [Concomitant]
     Dates: start: 2011
  4. TAGAMET [Concomitant]
  5. ZANTAC [Concomitant]
  6. TUMS [Concomitant]
     Dosage: AS NEEDED
  7. MYLANTA [Concomitant]
  8. ROLAIDS [Concomitant]
     Dosage: AS NEEDED
  9. MILK OF MAGNESIA [Concomitant]
     Dosage: AS NEEDED
  10. LIPITOR [Concomitant]
     Indication: BLOOD CHOLESTEROL ABNORMAL
  11. CELEBRAX [Concomitant]
     Indication: ARTHRITIS
  12. MOBIC [Concomitant]
     Indication: ARTHRITIS
  13. TREMEDOL [Concomitant]
     Indication: ARTHRITIS
  14. GAS-X [Concomitant]
     Dosage: TAKEN AS NEEDED
  15. MELOXICAM [Concomitant]
     Dates: start: 20100326
  16. OMEPRAZOLE [Concomitant]
     Dates: start: 20100224
  17. OXYBUTYNIN [Concomitant]
     Dates: start: 20100224
  18. FEXFENDINE [Concomitant]
     Dates: start: 20100322
  19. TIZANIDINE [Concomitant]
     Dates: start: 20100506
  20. ATENOLOL [Concomitant]
     Dates: start: 20111222
  21. CYMBALTA [Concomitant]
     Dates: start: 20121102
  22. BACLOFEN [Concomitant]
     Dates: start: 20130312
  23. MONTELUKAST [Concomitant]
     Dates: start: 20130601
  24. ATORVASTATIN [Concomitant]
     Dates: start: 20130530

REACTIONS (9)
  - Arthropathy [Unknown]
  - Benign bone neoplasm [Unknown]
  - Osteoporosis [Unknown]
  - Polyarthritis [Unknown]
  - Gallbladder disorder [Unknown]
  - Foot fracture [Unknown]
  - Bone pain [Unknown]
  - Vertigo [Unknown]
  - Arthralgia [Unknown]
